FAERS Safety Report 9870105 (Version 1)
Quarter: 2014Q1

REPORT INFORMATION
  Report Type: Spontaneous
  Country: US (occurrence: US)
  Receive Date: 20140205
  Receipt Date: 20140205
  Transmission Date: 20141002
  Serious: No
  Sender: FDA-Public Use
  Company Number: US-009507513-1402USA000080

PATIENT
  Sex: Female

DRUGS (1)
  1. DR. SCHOLL?S ODOR-X FOOT POWDER [Suspect]
     Indication: SKIN ODOUR ABNORMAL
     Dosage: UNK, UNKNOWN
     Route: 061

REACTIONS (1)
  - Drug ineffective [Unknown]
